FAERS Safety Report 21748134 (Version 2)
Quarter: 2022Q4

REPORT INFORMATION
  Report Type: Spontaneous
  Country: CA (occurrence: CA)
  Receive Date: 20221219
  Receipt Date: 20221221
  Transmission Date: 20230112
  Serious: Yes (Other)
  Sender: FDA-Public Use
  Company Number: CA-PFIZER INC-202101813770

PATIENT
  Age: 58 Year
  Sex: Male

DRUGS (7)
  1. XELJANZ [Suspect]
     Active Substance: TOFACITINIB CITRATE
     Indication: Colitis ulcerative
     Dosage: 10 MG, 2X/DAY
     Route: 048
     Dates: start: 20210427
  2. XELJANZ [Suspect]
     Active Substance: TOFACITINIB CITRATE
     Dosage: 5 MG, 2X/DAY
     Route: 048
  3. XELJANZ [Suspect]
     Active Substance: TOFACITINIB CITRATE
     Dosage: 10 MG, 2X/DAY
     Route: 048
  4. BUDESONIDE [Concomitant]
     Active Substance: BUDESONIDE
     Dosage: 9 MG DOSAGE INFORMATION NOT AVAILABLE
  5. IRON [Concomitant]
     Active Substance: IRON
     Indication: Anaemia
     Dosage: UNK, DAILY
  6. MESALAMINE [Concomitant]
     Active Substance: MESALAMINE
     Dosage: 4.8 G, DAILY (1 DF)
     Route: 065
  7. MESALAMINE [Concomitant]
     Active Substance: MESALAMINE
     Dosage: 1 DF

REACTIONS (5)
  - Hernia [Recovering/Resolving]
  - Therapeutic product effect incomplete [Unknown]
  - Condition aggravated [Recovering/Resolving]
  - Serum ferritin decreased [Unknown]
  - Nervous system disorder [Unknown]

NARRATIVE: CASE EVENT DATE: 20210401
